FAERS Safety Report 18034293 (Version 2)
Quarter: 2020Q3

REPORT INFORMATION
  Report Type: Spontaneous
  Country: US (occurrence: US)
  Receive Date: 20200716
  Receipt Date: 20200723
  Transmission Date: 20201103
  Serious: Yes (Hospitalization, Other)
  Sender: FDA-Public Use
  Company Number: US-TEVA-2020-US-1799899

PATIENT
  Sex: Male

DRUGS (13)
  1. DOXORUBICIN [Suspect]
     Active Substance: DOXORUBICIN
     Indication: PRIMITIVE NEUROECTODERMAL TUMOUR
  2. TOPOTECAN [Suspect]
     Active Substance: TOPOTECAN HYDROCHLORIDE
     Indication: HEPATOBLASTOMA
     Dosage: ONE CYCLE FOR EMBRYONAL HEPATOBLASTOMA
     Route: 065
  3. VINCRISTINE [Suspect]
     Active Substance: VINCRISTINE
     Indication: HEPATOBLASTOMA
     Dosage: SEVEN CYCLES INITIALY FOR EMBRYONAL HEPATOBLASTOMA, LATER GIVEN AS INDUCTION THERAPY FOR PRIMITIV...
     Route: 065
  4. IFOSFAMIDE. [Suspect]
     Active Substance: IFOSFAMIDE
     Indication: PRIMITIVE NEUROECTODERMAL TUMOUR
     Dosage: INDUCTION THERAPY FOR PRIMITIVE NEUROECTODERMAL TUMOUR
     Route: 065
  5. DEXRAZOXANE. [Suspect]
     Active Substance: DEXRAZOXANE
     Indication: CHELATION THERAPY
     Route: 065
  6. 5?FLUOROURACIL [Suspect]
     Active Substance: FLUOROURACIL
     Indication: HEPATOBLASTOMA
     Dosage: SEVEN CYCLES FOR EMBRYONAL HEPATOBLASTOMA
     Route: 065
  7. VINCRISTINE [Suspect]
     Active Substance: VINCRISTINE
     Indication: PRIMITIVE NEUROECTODERMAL TUMOUR
  8. DOXORUBICIN [Suspect]
     Active Substance: DOXORUBICIN
     Indication: HEPATOBLASTOMA
     Dosage: SEVEN CYCLES INITIALY EMBRYONAL HEPATOBLASTOMA, LATER GIVEN AS INDUCTION THERAPY FOR PRIMITIVE NE...
     Route: 065
  9. CYCLOPHOSPHAMIDE. [Suspect]
     Active Substance: CYCLOPHOSPHAMIDE
     Indication: HEPATOBLASTOMA
     Dosage: ONE CYCLE INITIALY FOR EMBRYONAL HEPATOBLASTOMA, LATER GIVEN AS INDUCTION THERAPY FOR PRIMITIVE N...
     Route: 065
  10. ETOPOSIDE. [Suspect]
     Active Substance: ETOPOSIDE
     Indication: PRIMITIVE NEUROECTODERMAL TUMOUR
     Dosage: INDUCTION THERAPY FOR PRIMITIVE NEUROECTODERMAL TUMOUR
     Route: 065
  11. CYCLOPHOSPHAMIDE. [Suspect]
     Active Substance: CYCLOPHOSPHAMIDE
     Indication: PRIMITIVE NEUROECTODERMAL TUMOUR
  12. NEULASTA [Suspect]
     Active Substance: PEGFILGRASTIM
     Indication: PRODUCT USED FOR UNKNOWN INDICATION
     Route: 065
  13. CISPLATIN. [Suspect]
     Active Substance: CISPLATIN
     Indication: HEPATOBLASTOMA
     Dosage: SEVEN CYCLES FOR EMBRYONAL HEPATOBLASTOMA
     Route: 065

REACTIONS (5)
  - Primitive neuroectodermal tumour [Recovered/Resolved]
  - Second primary malignancy [Recovered/Resolved]
  - Candida sepsis [Recovering/Resolving]
  - Cardiac failure [Unknown]
  - Febrile neutropenia [Unknown]
